FAERS Safety Report 10082594 (Version 2)
Quarter: 2014Q2

REPORT INFORMATION
  Report Type: Report from Study
  Country: US (occurrence: US)
  Receive Date: 20140416
  Receipt Date: 20140428
  Transmission Date: 20141212
  Serious: Yes (Hospitalization, Other)
  Sender: FDA-Public Use
  Company Number: US-PFIZER INC-2014102337

PATIENT
  Age: 72 Year
  Sex: Female
  Weight: 57 kg

DRUGS (15)
  1. MLN8237 [Suspect]
     Indication: MANTLE CELL LYMPHOMA
     Dosage: 30 MG, 2X/DAY,ON DAYS 1-7
     Route: 048
     Dates: start: 20140127, end: 20140324
  2. VELCADE [Suspect]
     Indication: MANTLE CELL LYMPHOMA
     Dosage: 1.3 MG/M2, DAYS 1, 8,15
     Route: 058
     Dates: start: 20140127
  3. RITUXIMAB [Suspect]
     Indication: MANTLE CELL LYMPHOMA
     Dosage: 375 MG/M2, ON DAY 1 FOR UP TO 8 CYCLES
     Route: 042
     Dates: start: 20140127
  4. RITUXIMAB [Suspect]
     Dosage: 375 MG/M2, EVERY 3 CYCLES(12 WKS)
     Route: 042
     Dates: end: 20140310
  5. HEPARIN SODIUM [Concomitant]
     Dosage: UNK
     Route: 065
  6. LANSOPRAZOLE [Concomitant]
     Dosage: UNK
     Route: 065
  7. VALACICLOVIR [Concomitant]
     Dosage: UNK
     Route: 065
  8. FUROSEMIDE [Concomitant]
     Dosage: UNK
     Route: 065
  9. LOPERAMIDE HYDROCHLORIDE [Concomitant]
     Dosage: UNK
     Route: 065
  10. ACETAMINOPHEN [Concomitant]
     Dosage: UNK
     Route: 065
  11. DIPHENHYDRAMINE [Concomitant]
     Dosage: UNK
     Route: 065
  12. FILGRASTIM [Concomitant]
     Dosage: UNK
     Route: 065
  13. PERCOCET [Concomitant]
     Dosage: UNK
     Route: 065
  14. NOVAMIN [Concomitant]
     Dosage: UNK
     Route: 065
  15. GRANISETRON [Concomitant]
     Dosage: UNK
     Route: 065

REACTIONS (4)
  - Pulmonary hypertension [Recovering/Resolving]
  - Renal failure acute [Recovering/Resolving]
  - Presyncope [Recovering/Resolving]
  - Right ventricular dysfunction [Recovering/Resolving]
